FAERS Safety Report 15998138 (Version 3)
Quarter: 2019Q3

REPORT INFORMATION
  Report Type: Report from Study
  Country: None (occurrence: US)
  Receive Date: 20190223
  Receipt Date: 20190809
  Transmission Date: 20191004
  Serious: Yes (Hospitalization)
  Sender: FDA-Public Use
  Company Number: US-ABBVIE-19K-163-2674266-00

PATIENT
  Age: 73 Year
  Sex: Female
  Weight: 73.55 kg

DRUGS (2)
  1. HUMIRA [Suspect]
     Active Substance: ADALIMUMAB
     Indication: PSORIASIS
     Route: 058
  2. HUMIRA [Suspect]
     Active Substance: ADALIMUMAB
     Indication: PSORIASIS
     Route: 058
     Dates: start: 2014, end: 201812

REACTIONS (8)
  - Injection site bruising [Unknown]
  - Intervertebral disc protrusion [Recovered/Resolved]
  - Hypertonic bladder [Recovering/Resolving]
  - Spinal stenosis [Recovered/Resolved]
  - Injection site pain [Recovered/Resolved]
  - Postoperative abscess [Unknown]
  - Stress urinary incontinence [Recovering/Resolving]
  - Malaise [Unknown]

NARRATIVE: CASE EVENT DATE: 201902
